FAERS Safety Report 6300152-2 (Version None)
Quarter: 2009Q3

REPORT INFORMATION
  Report Type: 
  Country: None (occurrence: None)
  Receive Date: 20090806
  Receipt Date: 20090729
  Transmission Date: 20100115
  Serious: Yes (Hospitalization)
  Sender: FDA-Public Use
  Company Number: PHHO2009GB09083

PATIENT
  Sex: Male
  Weight: 132 kg

DRUGS (3)
  1. RAD 666 RAD+TAB [Suspect]
     Indication: METASTATIC RENAL CELL CARCINOMA
     Dosage: 10 MG DAILY
     Route: 048
     Dates: start: 20090625, end: 20090717
  2. DEXAMETHASONE [Suspect]
     Indication: PNEUMONITIS
     Dosage: 8 MG, BID
     Route: 048
     Dates: start: 20090720, end: 20090722
  3. DEXAMETHASONE [Suspect]
     Dosage: 4 MG, BID
     Route: 048
     Dates: start: 20090722

REACTIONS (7)
  - COUGH [None]
  - DIABETES MELLITUS INADEQUATE CONTROL [None]
  - DYSPNOEA [None]
  - HYPERGLYCAEMIA [None]
  - LETHARGY [None]
  - PNEUMONITIS [None]
  - VISUAL IMPAIRMENT [None]
